FAERS Safety Report 8624549-0 (Version None)
Quarter: 2012Q3

REPORT INFORMATION
  Report Type: 
  Country: None (occurrence: None)
  Receive Date: 20120827
  Receipt Date: 20120816
  Transmission Date: 20120928
  Serious: Yes (Hospitalization)
  Sender: FDA-Public Use
  Company Number: CN-ASTRAZENECA-2012SE60782

PATIENT
  Sex: Female
  Weight: 55.8 kg

DRUGS (1)
  1. ZOLADEX [Suspect]
     Indication: BREAST CANCER
     Route: 058
     Dates: start: 20110825, end: 20111125

REACTIONS (2)
  - ENCEPHALOPATHY [None]
  - PITUITARY HAEMORRHAGE [None]
